FAERS Safety Report 11243451 (Version 1)
Quarter: 2015Q3

REPORT INFORMATION
  Report Type: Spontaneous
  Country: US (occurrence: None)
  Receive Date: 20150702
  Receipt Date: 20150702
  Transmission Date: 20151125
  Serious: Yes (Disabling)
  Sender: FDA-Public Use
  Company Number: None

PATIENT
  Age: 53 Year
  Sex: Male
  Weight: 72.58 kg

DRUGS (2)
  1. CIPROFLOXACIN 500 MG ACTAVIS PHARMA [Suspect]
     Active Substance: CIPROFLOXACIN
     Indication: PROSTATITIS
     Route: 048
     Dates: start: 20150130, end: 20150301
  2. FIBER SUPPLEMENT [Concomitant]

REACTIONS (21)
  - Arthralgia [None]
  - Pain in jaw [None]
  - Impaired work ability [None]
  - Neuropathy peripheral [None]
  - Nausea [None]
  - Musculoskeletal stiffness [None]
  - Peripheral coldness [None]
  - Lumbosacral radiculopathy [None]
  - Dyspnoea [None]
  - Burning sensation [None]
  - Hypoaesthesia [None]
  - Toxic neuropathy [None]
  - Polyneuropathy [None]
  - Neck pain [None]
  - Pain [None]
  - Paraesthesia [None]
  - Anxiety [None]
  - Asthenia [None]
  - Piriformis syndrome [None]
  - Gait disturbance [None]
  - Muscle twitching [None]

NARRATIVE: CASE EVENT DATE: 20150203
